FAERS Safety Report 4765670-7 (Version None)
Quarter: 2005Q3

REPORT INFORMATION
  Report Type: 
  Country: None (occurrence: None)
  Receive Date: 20050906
  Receipt Date: 20050817
  Transmission Date: 20060218
  Serious: Yes (Hospitalization)
  Sender: FDA-Public Use
  Company Number: 8011455

PATIENT
  Age: 23 Year
  Sex: Male
  Weight: 71 kg

DRUGS (6)
  1. KEPPRA [Suspect]
     Indication: EPILEPSY
     Dosage: 500 MG/D; PO
     Route: 048
     Dates: start: 20040224, end: 20040317
  2. KEPPRA [Suspect]
     Indication: EPILEPSY
     Dosage: 1000 MG/D; PO
     Route: 048
     Dates: start: 20040318, end: 20041012
  3. KEPPRA [Suspect]
     Indication: EPILEPSY
     Dosage: 1000 MG/D; PO
     Route: 048
     Dates: start: 20041219
  4. VALPROATE SODIUM [Concomitant]
  5. SOLIUM [Concomitant]
  6. RISPERDAL [Concomitant]

REACTIONS (7)
  - CONVULSION [None]
  - DEPRESSION [None]
  - DISTURBANCE IN ATTENTION [None]
  - EMOTIONAL DISORDER [None]
  - IRRITABILITY [None]
  - MEMORY IMPAIRMENT [None]
  - NIGHTMARE [None]
